FAERS Safety Report 9797540 (Version 3)
Quarter: 2014Q3

REPORT INFORMATION
  Report Type: Report from Study
  Country: FR (occurrence: FR)
  Receive Date: 20140106
  Receipt Date: 20140711
  Transmission Date: 20150326
  Serious: Yes (Hospitalization, Disabling, Other)
  Sender: FDA-Public Use
  Company Number: PHHY2013FR153017

PATIENT
  Age: 89 Year
  Sex: Female
  Weight: 55 kg

DRUGS (7)
  1. SIMVASTATIN. [Concomitant]
     Active Substance: SIMVASTATIN
     Dosage: UNK UKN, UNK
     Dates: start: 2003, end: 2012
  2. CARVEDILOL. [Concomitant]
     Active Substance: CARVEDILOL
     Dosage: UNK UKN, UNK
     Dates: start: 2004, end: 2012
  3. FUROSEMIDE. [Concomitant]
     Active Substance: FUROSEMIDE
     Dates: start: 2012, end: 201209
  4. ALDACTIN [Concomitant]
     Dates: start: 2012, end: 201209
  5. ICAZ [Concomitant]
     Active Substance: ISRADIPINE
     Dosage: UNK UKN, UNK
     Dates: start: 1987
  6. KARDEGIC [Concomitant]
     Active Substance: ASPIRIN LYSINE
     Dosage: UNK UKN, UNK
     Dates: start: 2003
  7. ACLASTA [Suspect]
     Active Substance: ZOLEDRONIC ACID
     Indication: OSTEOPOROTIC FRACTURE
     Dosage: 5 MG, UNK
     Route: 042
     Dates: start: 201107

REACTIONS (4)
  - Atrial fibrillation [Unknown]
  - Aphasia [Not Recovered/Not Resolved]
  - Cerebral haematoma [Not Recovered/Not Resolved]
  - Hemiplegia [Not Recovered/Not Resolved]

NARRATIVE: CASE EVENT DATE: 20130704
